FAERS Safety Report 5991859-5 (Version None)
Quarter: 2008Q4

REPORT INFORMATION
  Report Type: 
  Country: None (occurrence: None)
  Receive Date: 20081202
  Receipt Date: 20071019
  Transmission Date: 20090506
  Serious: Yes (Other)
  Sender: FDA-Public Use
  Company Number: WAES 0707USA04742

PATIENT
  Age: 74 Year
  Sex: Female

DRUGS (5)
  1. FOSAMAX [Suspect]
     Indication: OSTEOPOROSIS
     Dosage: 70 MG/PO
     Route: 048
     Dates: start: 20000823, end: 20060201
  2. AVANDIA [Concomitant]
  3. DIOVAN HCT [Concomitant]
  4. PRANDIN [Concomitant]
  5. METFORMIN HCL [Concomitant]

REACTIONS (5)
  - ABSCESS ORAL [None]
  - DENTAL NECROSIS [None]
  - OSTEONECROSIS [None]
  - PERIODONTITIS [None]
  - TOOTH FRACTURE [None]
